FAERS Safety Report 25473271 (Version 1)
Quarter: 2025Q2

REPORT INFORMATION
  Report Type: Report from Study
  Country: DE (occurrence: DE)
  Receive Date: 20250624
  Receipt Date: 20250624
  Transmission Date: 20250716
  Serious: Yes (Hospitalization)
  Sender: MYLAN
  Company Number: DE-JNJFOC-20250607291

PATIENT
  Sex: Male

DRUGS (92)
  1. METHOTREXATE [Suspect]
     Active Substance: METHOTREXATE
     Indication: Product used for unknown indication
  2. METHOTREXATE [Suspect]
     Active Substance: METHOTREXATE
  3. METHOTREXATE [Suspect]
     Active Substance: METHOTREXATE
     Route: 065
  4. METHOTREXATE [Suspect]
     Active Substance: METHOTREXATE
     Route: 065
  5. METHOTREXATE [Suspect]
     Active Substance: METHOTREXATE
  6. METHOTREXATE [Suspect]
     Active Substance: METHOTREXATE
  7. METHOTREXATE [Suspect]
     Active Substance: METHOTREXATE
     Route: 065
  8. METHOTREXATE [Suspect]
     Active Substance: METHOTREXATE
     Route: 065
  9. METHOTREXATE [Suspect]
     Active Substance: METHOTREXATE
     Route: 065
  10. METHOTREXATE [Suspect]
     Active Substance: METHOTREXATE
  11. METHOTREXATE [Suspect]
     Active Substance: METHOTREXATE
     Route: 065
  12. METHOTREXATE [Suspect]
     Active Substance: METHOTREXATE
  13. METHOTREXATE [Suspect]
     Active Substance: METHOTREXATE
     Route: 065
  14. METHOTREXATE [Suspect]
     Active Substance: METHOTREXATE
     Route: 065
  15. METHOTREXATE [Suspect]
     Active Substance: METHOTREXATE
  16. METHOTREXATE [Suspect]
     Active Substance: METHOTREXATE
  17. METHOTREXATE [Suspect]
     Active Substance: METHOTREXATE
  18. METHOTREXATE [Suspect]
     Active Substance: METHOTREXATE
  19. METHOTREXATE [Suspect]
     Active Substance: METHOTREXATE
     Route: 065
  20. METHOTREXATE [Suspect]
     Active Substance: METHOTREXATE
     Route: 065
  21. METHOTREXATE [Suspect]
     Active Substance: METHOTREXATE
     Dates: start: 20221215, end: 20230301
  22. METHOTREXATE [Suspect]
     Active Substance: METHOTREXATE
     Dates: start: 20221215, end: 20230301
  23. METHOTREXATE [Suspect]
     Active Substance: METHOTREXATE
     Route: 065
     Dates: start: 20221215, end: 20230301
  24. METHOTREXATE [Suspect]
     Active Substance: METHOTREXATE
     Route: 065
     Dates: start: 20221215, end: 20230301
  25. METHOTREXATE [Suspect]
     Active Substance: METHOTREXATE
     Route: 065
  26. METHOTREXATE [Suspect]
     Active Substance: METHOTREXATE
  27. METHOTREXATE [Suspect]
     Active Substance: METHOTREXATE
  28. METHOTREXATE [Suspect]
     Active Substance: METHOTREXATE
     Route: 065
  29. METHOTREXATE [Suspect]
     Active Substance: METHOTREXATE
  30. METHOTREXATE [Suspect]
     Active Substance: METHOTREXATE
  31. METHOTREXATE [Suspect]
     Active Substance: METHOTREXATE
     Route: 065
  32. METHOTREXATE [Suspect]
     Active Substance: METHOTREXATE
     Route: 065
  33. METHOTREXATE [Suspect]
     Active Substance: METHOTREXATE
  34. METHOTREXATE [Suspect]
     Active Substance: METHOTREXATE
  35. METHOTREXATE [Suspect]
     Active Substance: METHOTREXATE
     Route: 065
  36. METHOTREXATE [Suspect]
     Active Substance: METHOTREXATE
     Route: 065
  37. METHOTREXATE [Suspect]
     Active Substance: METHOTREXATE
     Route: 065
  38. METHOTREXATE [Suspect]
     Active Substance: METHOTREXATE
  39. METHOTREXATE [Suspect]
     Active Substance: METHOTREXATE
  40. METHOTREXATE [Suspect]
     Active Substance: METHOTREXATE
     Route: 065
  41. ETORICOXIB [Suspect]
     Active Substance: ETORICOXIB
     Indication: Product used for unknown indication
     Route: 065
  42. ETORICOXIB [Suspect]
     Active Substance: ETORICOXIB
  43. ETORICOXIB [Suspect]
     Active Substance: ETORICOXIB
  44. ETORICOXIB [Suspect]
     Active Substance: ETORICOXIB
     Route: 065
  45. ETORICOXIB [Suspect]
     Active Substance: ETORICOXIB
     Route: 065
  46. ETORICOXIB [Suspect]
     Active Substance: ETORICOXIB
  47. ETORICOXIB [Suspect]
     Active Substance: ETORICOXIB
  48. ETORICOXIB [Suspect]
     Active Substance: ETORICOXIB
     Route: 065
  49. SIMPONI [Suspect]
     Active Substance: GOLIMUMAB
     Indication: Axial spondyloarthritis
  50. SIMPONI [Suspect]
     Active Substance: GOLIMUMAB
     Indication: Psoriatic arthropathy
  51. SIMPONI [Suspect]
     Active Substance: GOLIMUMAB
     Route: 058
  52. SIMPONI [Suspect]
     Active Substance: GOLIMUMAB
     Route: 058
  53. SIMPONI [Suspect]
     Active Substance: GOLIMUMAB
  54. SIMPONI [Suspect]
     Active Substance: GOLIMUMAB
  55. SIMPONI [Suspect]
     Active Substance: GOLIMUMAB
     Route: 058
  56. SIMPONI [Suspect]
     Active Substance: GOLIMUMAB
     Route: 058
  57. SIMPONI [Suspect]
     Active Substance: GOLIMUMAB
  58. SIMPONI [Suspect]
     Active Substance: GOLIMUMAB
  59. SIMPONI [Suspect]
     Active Substance: GOLIMUMAB
     Route: 058
  60. SIMPONI [Suspect]
     Active Substance: GOLIMUMAB
     Route: 058
  61. SIMPONI [Suspect]
     Active Substance: GOLIMUMAB
  62. SIMPONI [Suspect]
     Active Substance: GOLIMUMAB
  63. SIMPONI [Suspect]
     Active Substance: GOLIMUMAB
     Route: 058
  64. SIMPONI [Suspect]
     Active Substance: GOLIMUMAB
     Route: 058
  65. SIMPONI [Suspect]
     Active Substance: GOLIMUMAB
  66. SIMPONI [Suspect]
     Active Substance: GOLIMUMAB
     Route: 058
  67. SIMPONI [Suspect]
     Active Substance: GOLIMUMAB
  68. SIMPONI [Suspect]
     Active Substance: GOLIMUMAB
     Route: 058
  69. SIMPONI [Suspect]
     Active Substance: GOLIMUMAB
  70. SIMPONI [Suspect]
     Active Substance: GOLIMUMAB
  71. SIMPONI [Suspect]
     Active Substance: GOLIMUMAB
     Route: 058
  72. SIMPONI [Suspect]
     Active Substance: GOLIMUMAB
     Route: 058
  73. SIMPONI [Suspect]
     Active Substance: GOLIMUMAB
  74. SIMPONI [Suspect]
     Active Substance: GOLIMUMAB
  75. SIMPONI [Suspect]
     Active Substance: GOLIMUMAB
     Route: 058
  76. SIMPONI [Suspect]
     Active Substance: GOLIMUMAB
     Route: 058
  77. SIMPONI [Suspect]
     Active Substance: GOLIMUMAB
  78. SIMPONI [Suspect]
     Active Substance: GOLIMUMAB
  79. SIMPONI [Suspect]
     Active Substance: GOLIMUMAB
     Route: 058
  80. SIMPONI [Suspect]
     Active Substance: GOLIMUMAB
     Route: 058
  81. SIMPONI [Suspect]
     Active Substance: GOLIMUMAB
  82. SIMPONI [Suspect]
     Active Substance: GOLIMUMAB
  83. SIMPONI [Suspect]
     Active Substance: GOLIMUMAB
     Route: 058
  84. SIMPONI [Suspect]
     Active Substance: GOLIMUMAB
     Route: 058
  85. SIMPONI [Suspect]
     Active Substance: GOLIMUMAB
  86. SIMPONI [Suspect]
     Active Substance: GOLIMUMAB
  87. SIMPONI [Suspect]
     Active Substance: GOLIMUMAB
     Route: 058
  88. SIMPONI [Suspect]
     Active Substance: GOLIMUMAB
     Route: 058
  89. SIMPONI [Suspect]
     Active Substance: GOLIMUMAB
  90. SIMPONI [Suspect]
     Active Substance: GOLIMUMAB
  91. SIMPONI [Suspect]
     Active Substance: GOLIMUMAB
     Route: 058
  92. SIMPONI [Suspect]
     Active Substance: GOLIMUMAB
     Route: 058

REACTIONS (2)
  - Benign prostatic hyperplasia [Unknown]
  - Urosepsis [Unknown]

NARRATIVE: CASE EVENT DATE: 20240925
